FAERS Safety Report 15132176 (Version 2)
Quarter: 2018Q3

REPORT INFORMATION
  Report Type: Spontaneous
  Country: CN (occurrence: CN)
  Receive Date: 20180711
  Receipt Date: 20180718
  Transmission Date: 20181010
  Serious: Yes (Hospitalization)
  Sender: FDA-Public Use
  Company Number: CN-009507513-1807CHN003499

PATIENT
  Age: 75 Year
  Sex: Female

DRUGS (1)
  1. IMIPENEM AND CILASTATIN [Suspect]
     Active Substance: CILASTATIN SODIUM\IMIPENEM
     Indication: LUNG INFECTION
     Dosage: 1 G, BID
     Route: 041
     Dates: start: 20180114, end: 20180117

REACTIONS (1)
  - Neurological symptom [Recovered/Resolved]

NARRATIVE: CASE EVENT DATE: 20180117
